FAERS Safety Report 6339833-3 (Version None)
Quarter: 2009Q3

REPORT INFORMATION
  Report Type: 
  Country: None (occurrence: None)
  Receive Date: 20090903
  Receipt Date: 20090831
  Transmission Date: 20100115
  Serious: Yes (Death, Hospitalization)
  Sender: FDA-Public Use
  Company Number: PHHY2009DE03600

PATIENT
  Sex: Male
  Weight: 86 kg

DRUGS (1)
  1. ACLASTA [Suspect]
     Indication: OSTEOPOROSIS
     Dosage: 5 MG / 100 ML
     Route: 042
     Dates: start: 20081027

REACTIONS (16)
  - ABDOMINAL PAIN UPPER [None]
  - BACK PAIN [None]
  - CHOLECYSTITIS [None]
  - COLECTOMY [None]
  - COLON NEOPLASM [None]
  - GASTRITIS [None]
  - GENERAL PHYSICAL HEALTH DETERIORATION [None]
  - ILEUS [None]
  - LARGE INTESTINE ANASTOMOSIS [None]
  - LARGE INTESTINE PERFORATION [None]
  - MESENTERIC VASCULAR INSUFFICIENCY [None]
  - PANCREATITIS ACUTE [None]
  - PANCREATITIS NECROTISING [None]
  - PERITONITIS [None]
  - REFLUX OESOPHAGITIS [None]
  - TUMOUR EXCISION [None]
